FAERS Safety Report 7797250-3 (Version None)
Quarter: 2011Q4

REPORT INFORMATION
  Report Type: 
  Country: None (occurrence: None)
  Receive Date: 20111005
  Receipt Date: 20110930
  Transmission Date: 20120403
  Serious: Yes (Death, Other)
  Sender: FDA-Public Use
  Company Number: PHHY2011IT87210

PATIENT
  Age: 37 Year
  Sex: Female

DRUGS (5)
  1. STEROIDS [Concomitant]
     Dosage: 20 MG, DAILY
  2. AZATHIOPRINE [Concomitant]
     Dosage: 2 MG/KG
  3. STEROIDS [Concomitant]
     Dosage: 150 MG , DALIY
     Route: 042
  4. TACROLIMUS [Suspect]
  5. CYCLOSPORINE [Suspect]
     Indication: LUNG TRANSPLANT
     Dosage: UNK UKN, UNK

REACTIONS (16)
  - CEREBRAL HAEMORRHAGE [None]
  - PLEURAL EFFUSION [None]
  - RESPIRATORY FAILURE [None]
  - BRONCHOSTENOSIS [None]
  - SCEDOSPORIUM INFECTION [None]
  - ATRIAL THROMBOSIS [None]
  - CONVULSION [None]
  - MYCETOMA MYCOTIC [None]
  - LUNG INFECTION PSEUDOMONAL [None]
  - RENAL FAILURE [None]
  - HEMIPARESIS [None]
  - BLINDNESS [None]
  - CHORIORETINITIS [None]
  - BRAIN ABSCESS [None]
  - LUNG TRANSPLANT REJECTION [None]
  - CANDIDURIA [None]
